FAERS Safety Report 7509624-6 (Version None)
Quarter: 2011Q2

REPORT INFORMATION
  Report Type: 
  Country: None (occurrence: None)
  Receive Date: 20110527
  Receipt Date: 20110503
  Transmission Date: 20111010
  Serious: Yes (Death, Other)
  Sender: FDA-Public Use
  Company Number: DE-JNJFOC-20110508076

PATIENT
  Age: 39 Year
  Sex: Male

DRUGS (4)
  1. IMMUNE GLOBULIN (HUMAN) [Suspect]
     Indication: INTESTINE TRANSPLANT REJECTION
     Route: 042
  2. THYMOGLOBULIN [Suspect]
     Indication: INTESTINE TRANSPLANT REJECTION
     Route: 065
  3. STEROIDS NOS [Suspect]
     Indication: INTESTINE TRANSPLANT REJECTION
     Route: 065
  4. ORTHOCLONE OKT3 [Suspect]
     Indication: INTESTINE TRANSPLANT REJECTION
     Dosage: 5 OR 10 DAYS SEQUENTIALLY
     Route: 065

REACTIONS (2)
  - DRUG INEFFECTIVE [None]
  - MULTI-ORGAN FAILURE [None]
